FAERS Safety Report 8248504-8 (Version None)
Quarter: 2012Q1

REPORT INFORMATION
  Report Type: 
  Country: None (occurrence: None)
  Receive Date: 20120330
  Receipt Date: 20120328
  Transmission Date: 20120608
  Serious: Yes (Other)
  Sender: FDA-Public Use
  Company Number: KR-MERCK-1203KOR00047

PATIENT
  Sex: Male

DRUGS (2)
  1. FOSAMAX PLUS D [Suspect]
     Indication: OSTEOPOROSIS
     Route: 048
     Dates: start: 20120101
  2. FOSAMAX PLUS D [Suspect]
     Route: 048

REACTIONS (2)
  - PARALYSIS [None]
  - BACK PAIN [None]
